FAERS Safety Report 12788572 (Version 1)
Quarter: 2016Q3

REPORT INFORMATION
  Report Type: Spontaneous
  Country: US (occurrence: US)
  Receive Date: 20160928
  Receipt Date: 20160928
  Transmission Date: 20161109
  Serious: Yes (Death, Life-Threatening, Hospitalization, Disabling)
  Sender: FDA-Public Use
  Company Number: None

PATIENT
  Age: 85 Year
  Sex: Male
  Weight: 69 kg

DRUGS (1)
  1. ACTIVASE [Suspect]
     Active Substance: ALTEPLASE
     Indication: CEREBROVASCULAR ACCIDENT
     Dosage: ?          OTHER FREQUENCY:SEE COMMENTS;?
     Route: 041
     Dates: start: 20160924, end: 20160924

REACTIONS (4)
  - Brain midline shift [None]
  - Intracranial mass [None]
  - Brain oedema [None]
  - Haemorrhagic transformation stroke [None]

NARRATIVE: CASE EVENT DATE: 20160925
